FAERS Safety Report 8464739-3 (Version None)
Quarter: 2012Q2

REPORT INFORMATION
  Report Type: 
  Country: None (occurrence: None)
  Receive Date: 20120626
  Receipt Date: 20120621
  Transmission Date: 20120825
  Serious: No
  Sender: FDA-Public Use
  Company Number: US-PFIZER INC-2012150073

PATIENT
  Sex: Female
  Weight: 104.31 kg

DRUGS (8)
  1. OMEPRAZOLE [Concomitant]
     Dosage: 20 MG, UNK
  2. BUPROPION [Concomitant]
     Dosage: 75 MG, 2X/DAY
     Route: 048
  3. LEVOXYL [Concomitant]
     Dosage: 200 UG, 1X/DAY
  4. FUROSEMIDE [Concomitant]
     Dosage: 20 MG, 1X/DAY
  5. SIMVASTATIN [Concomitant]
     Dosage: 40 MG, 1X/DAY
  6. LYRICA [Suspect]
     Indication: FIBROMYALGIA
     Dosage: 300 MG, 2X/DAY
     Route: 048
  7. GLYBURIDE [Concomitant]
     Dosage: 5 MG, 2X/DAY
  8. LISINOPRIL [Concomitant]
     Dosage: 10 MG, 1X/DAY

REACTIONS (1)
  - FEELING ABNORMAL [None]
